FAERS Safety Report 7380258-X (Version None)
Quarter: 2011Q1

REPORT INFORMATION
  Report Type: 
  Country: None (occurrence: None)
  Receive Date: 20110324
  Receipt Date: 20110324
  Transmission Date: 20110831
  Serious: Yes (Hospitalization)
  Sender: FDA-Public Use
  Company Number: None

PATIENT
  Sex: Female
  Weight: 14.5 kg

DRUGS (11)
  1. CYCLOPHOSPHAMIDE [Suspect]
     Dosage: 3600 MG
  2. BUMETANIDE [Concomitant]
  3. ACYCLOVIR [Concomitant]
  4. INTRALIPIDS [Concomitant]
  5. TOBRAMYCIN [Concomitant]
  6. THIOTEPA [Suspect]
     Dosage: 540 MG
  7. TPN ELECTROLYTES IN PLASTIC CONTAINER [Concomitant]
  8. FLUCONAZOLE [Concomitant]
  9. MORPHINE [Concomitant]
  10. URSODIOL [Concomitant]
  11. PANTOPRAZOLE [Concomitant]

REACTIONS (17)
  - VENOOCCLUSIVE LIVER DISEASE [None]
  - URINE OUTPUT DECREASED [None]
  - VOMITING [None]
  - HEPATOMEGALY [None]
  - HYPERBILIRUBINAEMIA [None]
  - OXYGEN SATURATION DECREASED [None]
  - FLUID OVERLOAD [None]
  - MUCOSAL INFLAMMATION [None]
  - ACUTE HEPATIC FAILURE [None]
  - ABDOMINAL PAIN [None]
  - PYREXIA [None]
  - INTERNATIONAL NORMALISED RATIO INCREASED [None]
  - GALLBLADDER DISORDER [None]
  - ASCITES [None]
  - COAGULOPATHY [None]
  - SPLENOMEGALY [None]
  - NEPHROPATHY [None]
